FAERS Safety Report 11877434 (Version 1)
Quarter: 2015Q4

REPORT INFORMATION
  Report Type: Report from Study
  Country: US (occurrence: US)
  Receive Date: 20151229
  Receipt Date: 20151229
  Transmission Date: 20160305
  Serious: Yes (Hospitalization)
  Sender: FDA-Public Use
  Company Number: US-BIOGEN-2015BI128994

PATIENT
  Sex: Female

DRUGS (1)
  1. AVONEX [Suspect]
     Active Substance: INTERFERON BETA-1A
     Indication: MULTIPLE SCLEROSIS
     Route: 030
     Dates: start: 20110603

REACTIONS (6)
  - Underdose [Recovered/Resolved]
  - Pneumonia [Recovered/Resolved]
  - Procedural anxiety [Unknown]
  - Chronic obstructive pulmonary disease [Recovered/Resolved]
  - Stress [Unknown]
  - Multiple sclerosis relapse [Unknown]
